FAERS Safety Report 8521100-0 (Version None)
Quarter: 2012Q3

REPORT INFORMATION
  Report Type: 
  Country: None (occurrence: None)
  Receive Date: 20120719
  Receipt Date: 20120713
  Transmission Date: 20120928
  Serious: Yes (Hospitalization)
  Sender: FDA-Public Use
  Company Number: FR-ROCHE-1066458

PATIENT
  Sex: Female
  Weight: 70 kg

DRUGS (7)
  1. COTRIATEC [Concomitant]
     Dates: start: 20100101
  2. COPEGUS [Suspect]
     Indication: HEPATITIS C
     Route: 048
     Dates: start: 20111025, end: 20120322
  3. NEORECORMON [Concomitant]
     Dates: start: 20111219
  4. BLINDED ALISPORIVIR [Suspect]
     Indication: HEPATITIS C
     Route: 048
     Dates: start: 20111025, end: 20120322
  5. PEGASYS [Suspect]
     Indication: HEPATITIS C
     Route: 065
     Dates: start: 20111025, end: 20120321
  6. TENORMIN [Concomitant]
     Dates: start: 20111219
  7. ACETAMINOPHEN [Concomitant]
     Dates: start: 20111025

REACTIONS (1)
  - CYTOTOXIC CARDIOMYOPATHY [None]
